FAERS Safety Report 5563262-3 (Version None)
Quarter: 2007Q4

REPORT INFORMATION
  Report Type: 
  Country: None (occurrence: None)
  Receive Date: 20071211
  Receipt Date: 20071126
  Transmission Date: 20080405
  Serious: Yes (Other)
  Sender: FDA-Public Use
  Company Number: 2007002148

PATIENT
  Age: 71 Year
  Sex: Male

DRUGS (4)
  1. TARCEVA [Suspect]
     Indication: LUNG NEOPLASM MALIGNANT
     Dosage: 150 MG, QD, ORAL
     Route: 048
     Dates: start: 20070105
  2. FENOFIBRATE [Concomitant]
  3. PERINDOPRIL ERBUMINE [Concomitant]
  4. DIAMICRON (GLICLAZIDE) [Concomitant]

REACTIONS (1)
  - VASCULAR PURPURA [None]
